FAERS Safety Report 23597471 (Version 2)
Quarter: 2024Q1

REPORT INFORMATION
  Report Type: Report from Study
  Country: CA (occurrence: None)
  Receive Date: 20240305
  Receipt Date: 20240308
  Transmission Date: 20240410
  Serious: Yes (Hospitalization)
  Sender: FDA-Public Use
  Company Number: 2024A048626

PATIENT
  Sex: Female

DRUGS (10)
  1. FASENRA [Suspect]
     Active Substance: BENRALIZUMAB
     Indication: Asthma
     Dosage: 30.0MG UNKNOWN
     Route: 058
     Dates: start: 20190108
  2. FASENRA [Suspect]
     Active Substance: BENRALIZUMAB
     Indication: Asthma
     Dosage: 30.0MG UNKNOWN
     Route: 058
     Dates: start: 20231229
  3. OMNARIS [Concomitant]
     Active Substance: CICLESONIDE
     Dosage: 50.0UG UNKNOWN
     Dates: start: 20200601
  4. PREDNISONE [Concomitant]
     Active Substance: PREDNISONE
  5. TRAZODONE [Concomitant]
     Active Substance: TRAZODONE HYDROCHLORIDE
  6. PROZAC [Concomitant]
     Active Substance: FLUOXETINE HYDROCHLORIDE
  7. ATIVAN [Concomitant]
     Active Substance: LORAZEPAM
  8. SPIRIVA [Concomitant]
     Active Substance: TIOTROPIUM BROMIDE MONOHYDRATE
  9. SYMBICORT [Concomitant]
     Active Substance: BUDESONIDE\FORMOTEROL FUMARATE DIHYDRATE
  10. ALBUTEROL [Concomitant]
     Active Substance: ALBUTEROL

REACTIONS (5)
  - Dyspnoea [Unknown]
  - Blood potassium decreased [Unknown]
  - Hypertension [Unknown]
  - Headache [Unknown]
  - Drug ineffective [Unknown]
